FAERS Safety Report 6187540-2 (Version None)
Quarter: 2009Q2

REPORT INFORMATION
  Report Type: 
  Country: None (occurrence: None)
  Receive Date: 20090512
  Receipt Date: 20090325
  Transmission Date: 20091009
  Serious: Yes (Hospitalization, Other)
  Sender: FDA-Public Use
  Company Number: US-ALEXION-A200900189

PATIENT
  Sex: Male

DRUGS (2)
  1. SOLIRIS [Suspect]
     Indication: PAROXYSMAL NOCTURNAL HAEMOGLOBINURIA
     Dosage: 600 MG, QW
     Route: 042
     Dates: start: 20081001
  2. SOLIRIS [Suspect]
     Dosage: 900 MG, Q2W
     Route: 042

REACTIONS (11)
  - ARTHRITIS INFECTIVE [None]
  - BLOOD PRODUCT TRANSFUSION DEPENDENT [None]
  - DEVICE FAILURE [None]
  - FALL [None]
  - FEELING COLD [None]
  - FUNGAL INFECTION [None]
  - HAEMATOCRIT DECREASED [None]
  - JOINT SWELLING [None]
  - JOINT WARMTH [None]
  - PYREXIA [None]
  - TREMOR [None]
